FAERS Safety Report 4493231-6 (Version None)
Quarter: 2004Q4

REPORT INFORMATION
  Report Type: 
  Country: None (occurrence: None)
  Receive Date: 20041025
  Receipt Date: 20031016
  Transmission Date: 20050328
  Serious: No
  Sender: FDA-Public Use
  Company Number: CART-10291

PATIENT
  Age: 41 Year
  Sex: Female

DRUGS (2)
  1. CARTICEL [Suspect]
     Indication: ARTHROPATHY
     Dosage: 1 NA ONCE IS
     Route: 035
     Dates: start: 20030210, end: 20030210
  2. ANTI-INFLAMMATORY MEDICATION [Concomitant]

REACTIONS (5)
  - ARTHRALGIA [None]
  - MONARTHRITIS [None]
  - PATELLOFEMORAL PAIN SYNDROME [None]
  - POST PROCEDURAL COMPLICATION [None]
  - REFLEX SYMPATHETIC DYSTROPHY [None]
